FAERS Safety Report 6659906-5 (Version None)
Quarter: 2010Q1

REPORT INFORMATION
  Report Type: 
  Country: None (occurrence: None)
  Receive Date: 20100330
  Receipt Date: 20100330
  Transmission Date: 20100710
  Serious: No
  Sender: FDA-Public Use
  Company Number: None

PATIENT
  Age: 53 Year
  Sex: Female
  Weight: 83.9154 kg

DRUGS (2)
  1. CYMBALTA [Suspect]
     Indication: DEPRESSION
     Dosage: 30 MG. TWICE A DAY PO
     Route: 048
     Dates: start: 20080111, end: 20100329
  2. CYMBALTA [Suspect]
     Indication: FIBROMYALGIA
     Dosage: 30 MG. TWICE A DAY PO
     Route: 048
     Dates: start: 20080111, end: 20100329

REACTIONS (11)
  - APATHY [None]
  - FATIGUE [None]
  - HEADACHE [None]
  - HYPOPHAGIA [None]
  - INSOMNIA [None]
  - MALAISE [None]
  - MYALGIA [None]
  - PARAESTHESIA [None]
  - RETCHING [None]
  - SUICIDAL IDEATION [None]
  - VOMITING [None]
